FAERS Safety Report 19953007 (Version 1)
Quarter: 2021Q4

REPORT INFORMATION
  Report Type: Spontaneous
  Country: CA (occurrence: CA)
  Receive Date: 20211014
  Receipt Date: 20211014
  Transmission Date: 20220303
  Serious: Yes (Other)
  Sender: FDA-Public Use
  Company Number: CA-ROCHE-2932114

PATIENT
  Sex: Female

DRUGS (10)
  1. RITUXIMAB [Suspect]
     Active Substance: RITUXIMAB
     Indication: Rheumatoid arthritis
     Route: 042
  2. RITUXIMAB [Suspect]
     Active Substance: RITUXIMAB
     Route: 042
  3. ACETAMINOPHEN [Concomitant]
     Active Substance: ACETAMINOPHEN
     Indication: Premedication
     Route: 048
  4. ATENOLOL [Concomitant]
     Active Substance: ATENOLOL
  5. CALCIUM [Concomitant]
     Active Substance: CALCIUM
  6. DIPHENHYDRAMINE HYDROCHLORIDE [Concomitant]
     Active Substance: DIPHENHYDRAMINE HYDROCHLORIDE
     Indication: Premedication
     Route: 048
  7. EZETIMIBE [Concomitant]
     Active Substance: EZETIMIBE
  8. LACTOBACILLUS ACIDOPHILUS [Concomitant]
     Active Substance: LACTOBACILLUS ACIDOPHILUS
  9. METHYLPREDNISOLONE [Concomitant]
     Active Substance: METHYLPREDNISOLONE
     Indication: Premedication
     Route: 042
  10. CHOLECALCIFEROL [Concomitant]
     Active Substance: CHOLECALCIFEROL

REACTIONS (3)
  - Atrial fibrillation [Unknown]
  - Intentional product use issue [Unknown]
  - Off label use [Unknown]
